FAERS Safety Report 5707101-6 (Version None)
Quarter: 2008Q2

REPORT INFORMATION
  Report Type: 
  Country: None (occurrence: None)
  Receive Date: 20080416
  Receipt Date: 20080407
  Transmission Date: 20081010
  Serious: Yes (Hospitalization)
  Sender: FDA-Public Use
  Company Number: US-ELI_LILLY_AND_COMPANY-US200804001576

PATIENT
  Sex: Female

DRUGS (2)
  1. FORTEO [Suspect]
     Indication: OSTEOPOROSIS
     Dates: start: 20060219
  2. CALCIUM [Concomitant]

REACTIONS (15)
  - AGEUSIA [None]
  - CONSTIPATION [None]
  - DIZZINESS [None]
  - DYSGEUSIA [None]
  - FEELING ABNORMAL [None]
  - INTESTINAL OBSTRUCTION [None]
  - MOVEMENT DISORDER [None]
  - MYALGIA [None]
  - NAUSEA [None]
  - PAIN [None]
  - PAIN IN EXTREMITY [None]
  - ROTATOR CUFF SYNDROME [None]
  - VOMITING [None]
  - WEIGHT DECREASED [None]
  - WEIGHT GAIN POOR [None]
